FAERS Safety Report 20507390 (Version 1)
Quarter: 2022Q1

REPORT INFORMATION
  Report Type: Spontaneous
  Country: LT (occurrence: LT)
  Receive Date: 20220223
  Receipt Date: 20220223
  Transmission Date: 20220423
  Serious: Yes (Death, Other)
  Sender: FDA-Public Use
  Company Number: LT-KRKA-LT2022K01423LIT

PATIENT
  Sex: Female

DRUGS (7)
  1. ACYCLOVIR [Suspect]
     Active Substance: ACYCLOVIR
     Indication: Congenital herpes simplex infection
     Route: 065
  2. AMOXICILLIN\CLAVULANIC ACID [Suspect]
     Active Substance: AMOXICILLIN\CLAVULANIC ACID
     Indication: Pharyngitis
     Route: 064
  3. AMOXICILLIN\CLAVULANIC ACID [Suspect]
     Active Substance: AMOXICILLIN\CLAVULANIC ACID
     Indication: Urinary tract infection
  4. GENTAMICIN [Concomitant]
     Active Substance: GENTAMICIN
     Indication: Evidence based treatment
  5. GENTAMICIN [Concomitant]
     Active Substance: GENTAMICIN
     Indication: Sepsis
  6. PENICILLIN [Concomitant]
     Active Substance: PENICILLIN
     Indication: Evidence based treatment
     Route: 042
  7. PENICILLIN [Concomitant]
     Active Substance: PENICILLIN
     Indication: Sepsis

REACTIONS (3)
  - Multiple organ dysfunction syndrome [Fatal]
  - Drug ineffective [Fatal]
  - Exposure during pregnancy [Unknown]
